FAERS Safety Report 8605858 (Version 3)
Quarter: 2013Q2

REPORT INFORMATION
  Report Type: Spontaneous
  Country: US (occurrence: US)
  Receive Date: 20120608
  Receipt Date: 20130517
  Transmission Date: 20140414
  Serious: Yes (Hospitalization, Other)
  Sender: FDA-Public Use
  Company Number: US-B.I. PHARMACEUTICALS,INC./RIDGEFIELD-2012-BP-12910BP

PATIENT
  Sex: Male
  Weight: 58.97 kg

DRUGS (10)
  1. PRADAXA [Suspect]
     Dosage: 300 MG
     Route: 048
     Dates: start: 2010, end: 201202
  2. WARFARIN [Concomitant]
  3. PLAVIX [Concomitant]
     Indication: ATRIAL FIBRILLATION
     Dosage: 75 MG
     Route: 048
     Dates: start: 20111017
  4. ASPIRIN [Concomitant]
  5. PRAVASTATIN SODIUM [Concomitant]
     Dosage: 20 MG
     Dates: start: 20111221
  6. MULTAQ [Concomitant]
     Dosage: 800 MG
     Dates: start: 20110927
  7. GLIPIZIDE [Concomitant]
     Dosage: 5 MG
     Dates: start: 20111221
  8. HYDROCHLOROTHIAZIDE [Concomitant]
     Dosage: 12.5 MG
     Route: 048
  9. DILTIAZEM HCL [Concomitant]
     Dosage: 360 MG
     Route: 048
  10. CLONIDINE HCL [Concomitant]
     Indication: HYPERTENSION
     Dosage: 0.6 MG
     Dates: start: 20111025

REACTIONS (3)
  - Condition aggravated [Unknown]
  - Renal haemorrhage [Unknown]
  - Haemoptysis [Unknown]
